FAERS Safety Report 20292524 (Version 1)
Quarter: 2022Q1

REPORT INFORMATION
  Report Type: Spontaneous
  Country: US (occurrence: US)
  Receive Date: 20220104
  Receipt Date: 20220104
  Transmission Date: 20220423
  Serious: No
  Sender: FDA-Public Use
  Company Number: US-PFIZER INC-202101828201

PATIENT
  Age: 72 Year
  Sex: Female

DRUGS (1)
  1. PANTOPRAZOLE [Suspect]
     Active Substance: PANTOPRAZOLE
     Indication: Gastrooesophageal reflux disease
     Dosage: 40 MG

REACTIONS (6)
  - Off label use [Unknown]
  - Product use issue [Unknown]
  - Cough [Unknown]
  - Osteoporosis [Unknown]
  - Myalgia [Unknown]
  - Flatulence [Unknown]
